FAERS Safety Report 8616013-X (Version None)
Quarter: 2012Q3

REPORT INFORMATION
  Report Type: 
  Country: None (occurrence: None)
  Receive Date: 20120823
  Receipt Date: 20120815
  Transmission Date: 20120928
  Serious: Yes (Hospitalization, Disabling, Other)
  Sender: FDA-Public Use
  Company Number: US-009507513-1208USA005572

PATIENT

DRUGS (6)
  1. ENALAPRIL MALEATE [Concomitant]
     Dosage: UNK
     Dates: start: 19640101
  2. HYDROCHLOROTHIAZIDE [Concomitant]
     Dosage: UNK
  3. FOSAMAX [Suspect]
     Indication: OSTEOPENIA
  4. LEVOXYL [Concomitant]
  5. POTASSIUM (UNSPECIFIED) [Concomitant]
  6. FOSAMAX [Suspect]
     Indication: OSTEOPOROSIS
     Route: 048

REACTIONS (47)
  - SPINAL DISORDER [None]
  - RADICULITIS LUMBOSACRAL [None]
  - MYALGIA [None]
  - HYPERCALCAEMIA [None]
  - BACK PAIN [None]
  - ANXIETY [None]
  - HERPES ZOSTER [None]
  - GASTROOESOPHAGEAL REFLUX DISEASE [None]
  - BRONCHITIS [None]
  - ARTHROPATHY [None]
  - DEPRESSION [None]
  - FALL [None]
  - OEDEMA [None]
  - HYPOTHYROIDISM [None]
  - COUGH [None]
  - ARTHRALGIA [None]
  - ONYCHOMYCOSIS [None]
  - MYOSITIS [None]
  - ANAEMIA [None]
  - OSTEOPOROSIS [None]
  - ACUTE SINUSITIS [None]
  - PYELONEPHRITIS ACUTE [None]
  - CYSTITIS [None]
  - RESTLESS LEGS SYNDROME [None]
  - FEMUR FRACTURE [None]
  - BONE DENSITY DECREASED [None]
  - ASTHMA [None]
  - HYPERLIPIDAEMIA [None]
  - TYPE 2 DIABETES MELLITUS [None]
  - PAIN IN EXTREMITY [None]
  - CHEST PAIN [None]
  - VITAMIN D DEFICIENCY [None]
  - DYSURIA [None]
  - STRESS FRACTURE [None]
  - WRIST FRACTURE [None]
  - CHOLECYSTECTOMY [None]
  - URINARY TRACT INFECTION [None]
  - SEBORRHOEIC DERMATITIS [None]
  - HYPERHIDROSIS [None]
  - INFLUENZA [None]
  - FOOT FRACTURE [None]
  - ANKLE FRACTURE [None]
  - DYSPNOEA [None]
  - SCIATICA [None]
  - RHINITIS ALLERGIC [None]
  - HAEMANGIOMA [None]
  - MIGRAINE [None]
